FAERS Safety Report 5513128-X (Version None)
Quarter: 2007Q4

REPORT INFORMATION
  Report Type: 
  Country: None (occurrence: None)
  Receive Date: 20071108
  Receipt Date: 20071030
  Transmission Date: 20080405
  Serious: Yes (Other)
  Sender: FDA-Public Use
  Company Number: L07-TUR-05766-02

PATIENT
  Age: 20 Day
  Sex: Male
  Weight: 3 kg

DRUGS (1)
  1. CARBAMAZEPINE [Suspect]
     Dosage: 400 MG BID

REACTIONS (14)
  - ATRIAL SEPTAL DEFECT [None]
  - CARDIAC FAILURE CONGESTIVE [None]
  - CARDIAC MURMUR [None]
  - CARDIOMEGALY [None]
  - CONGENITAL ARTERIAL MALFORMATION [None]
  - CYANOSIS CENTRAL [None]
  - DRUG EXPOSURE DURING PREGNANCY [None]
  - HEART DISEASE CONGENITAL [None]
  - HYPERHIDROSIS [None]
  - LUNG DISORDER [None]
  - MICROGNATHIA [None]
  - OEDEMA PERIPHERAL [None]
  - TACHYCARDIA [None]
  - TRANSPOSITION OF THE GREAT VESSELS [None]
